FAERS Safety Report 7607621 (Version 5)
Quarter: 2013Q3

REPORT INFORMATION
  Report Type: Spontaneous
  Country: US (occurrence: US)
  Receive Date: 20100927
  Receipt Date: 20130826
  Transmission Date: 20140515
  Serious: Yes (Hospitalization, Other)
  Sender: FDA-Public Use
  Company Number: US-ROCHE-702826

PATIENT
  Age: 34 Year
  Sex: Female
  Weight: 54.4 kg

DRUGS (2)
  1. ACCUTANE [Suspect]
     Indication: ACNE CYSTIC
     Dosage: OTHER INDICATION: PERIORAL DERMATITIS
     Route: 048
     Dates: start: 199410, end: 199502
  2. ACCUTANE [Suspect]
     Dosage: OTHER INDICATION: PERIORAL DERMATITIS
     Route: 048

REACTIONS (13)
  - Crohn^s disease [Unknown]
  - Small intestinal obstruction [Unknown]
  - Colitis [Unknown]
  - Inflammatory bowel disease [Unknown]
  - Oesophageal ulcer [Unknown]
  - Colitis ulcerative [Unknown]
  - Anal fistula [Unknown]
  - Depression [Unknown]
  - Odynophagia [Unknown]
  - Ventricular extrasystoles [Unknown]
  - Mouth ulceration [Unknown]
  - Eye inflammation [Unknown]
  - Dysphagia [Unknown]
